FAERS Safety Report 11746779 (Version 2)
Quarter: 2015Q4

REPORT INFORMATION
  Report Type: Spontaneous
  Country: US (occurrence: US)
  Receive Date: 20151117
  Receipt Date: 20151202
  Transmission Date: 20160304
  Serious: No
  Sender: FDA-Public Use
  Company Number: US-PFIZER INC-2015387206

PATIENT
  Age: 62 Year
  Sex: Female

DRUGS (2)
  1. TERCONAZOLE. [Suspect]
     Active Substance: TERCONAZOLE
     Indication: FUNGAL INFECTION
     Dosage: UNK
  2. FLUCONAZOLE. [Suspect]
     Active Substance: FLUCONAZOLE
     Indication: FUNGAL INFECTION
     Dosage: UNK

REACTIONS (1)
  - Drug ineffective [Unknown]
